FAERS Safety Report 19796711 (Version 1)
Quarter: 2021Q3

REPORT INFORMATION
  Report Type: Spontaneous
  Country: DE (occurrence: DE)
  Receive Date: 20210907
  Receipt Date: 20210907
  Transmission Date: 20211014
  Serious: Yes (Hospitalization, Other)
  Sender: FDA-Public Use
  Company Number: DE-ROCHE-2882312

PATIENT
  Sex: Male

DRUGS (3)
  1. LUCENTIS [Suspect]
     Active Substance: RANIBIZUMAB
     Indication: PRODUCT USED FOR UNKNOWN INDICATION
     Route: 047
     Dates: start: 20150922, end: 20210629
  2. LUCENTIS [Suspect]
     Active Substance: RANIBIZUMAB
     Route: 047
  3. ISOPTO?MAX [Concomitant]
     Active Substance: DEXAMETHASONE\NEOMYCIN SULFATE\POLYMYXIN B SULFATE
     Indication: PRODUCT USED FOR UNKNOWN INDICATION
     Dosage: UNK (4X DAILY)
     Route: 065

REACTIONS (3)
  - Staphylococcal pharyngitis [Unknown]
  - Bacterial rhinitis [Unknown]
  - Endophthalmitis [Unknown]

NARRATIVE: CASE EVENT DATE: 202107
